FAERS Safety Report 8190809-3 (Version None)
Quarter: 2012Q1

REPORT INFORMATION
  Report Type: 
  Country: None (occurrence: None)
  Receive Date: 20120307
  Receipt Date: 20120223
  Transmission Date: 20120608
  Serious: Yes (Hospitalization)
  Sender: FDA-Public Use
  Company Number: AU-INCYTE CORPORATION-2012IN000223

PATIENT
  Sex: Male

DRUGS (2)
  1. INCB018424 [Suspect]
     Indication: MYELOFIBROSIS
     Dosage: 15 MG, BID
     Route: 048
     Dates: start: 20120103, end: 20120210
  2. INCB018424 [Suspect]
     Indication: POLYCYTHAEMIA

REACTIONS (2)
  - INTRA-ABDOMINAL HAEMORRHAGE [None]
  - PULMONARY EMBOLISM [None]
